FAERS Safety Report 7285871-6 (Version None)
Quarter: 2011Q1

REPORT INFORMATION
  Report Type: 
  Country: None (occurrence: None)
  Receive Date: 20110128
  Receipt Date: 20110120
  Transmission Date: 20110831
  Serious: Yes (Other)
  Sender: FDA-Public Use
  Company Number: TPA2011A00283

PATIENT
  Age: 62 Year
  Sex: Male

DRUGS (2)
  1. AMARYL [Concomitant]
  2. ACTOS [Suspect]
     Indication: DIABETES MELLITUS
     Dosage: 30 MG, 1 IN 1 D, ORAL
     Route: 048

REACTIONS (3)
  - RENAL FAILURE [None]
  - DIABETES MELLITUS INADEQUATE CONTROL [None]
  - THERAPY CESSATION [None]
